FAERS Safety Report 21639974 (Version 2)
Quarter: 2023Q1

REPORT INFORMATION
  Report Type: Report from Study
  Country: US (occurrence: US)
  Receive Date: 20221124
  Receipt Date: 20230104
  Transmission Date: 20230417
  Serious: No
  Sender: FDA-Public Use
  Company Number: US-ABBVIE-22K-163-4525567-00

PATIENT
  Age: 63 Year
  Sex: Male
  Weight: 69.85 kg

DRUGS (23)
  1. HUMIRA [Suspect]
     Active Substance: ADALIMUMAB
     Indication: Rheumatoid arthritis
     Dosage: FORM STRENGTH 40 MILLIGRAM?START DATE 2015 OR 2016
     Route: 058
     Dates: start: 2015, end: 20220922
  2. HUMIRA [Suspect]
     Active Substance: ADALIMUMAB
     Dosage: FORM STRENGTH 40 MILLIGRAM
     Route: 058
     Dates: start: 20221006
  3. HUMIRA [Suspect]
     Active Substance: ADALIMUMAB
     Route: 058
  4. MAGNESIUM [Concomitant]
     Active Substance: MAGNESIUM
     Indication: Supplementation therapy
  5. VITAMIN D3 [Concomitant]
     Active Substance: CHOLECALCIFEROL
     Indication: Supplementation therapy
  6. TYLENOL [Suspect]
     Active Substance: ACETAMINOPHEN
     Indication: Product used for unknown indication
     Route: 065
  7. SELENIUM [Concomitant]
     Active Substance: SELENIUM
     Indication: Supplementation therapy
  8. VITAMIN A [Concomitant]
     Active Substance: VITAMIN A
     Indication: Supplementation therapy
  9. ZINC [Concomitant]
     Active Substance: ZINC
     Indication: Supplementation therapy
  10. FIBERCON [Concomitant]
     Active Substance: CALCIUM POLYCARBOPHIL
     Indication: Supplementation therapy
  11. LUNESTA [Concomitant]
     Active Substance: ESZOPICLONE
     Indication: Insomnia
  12. MELOXICAM [Concomitant]
     Active Substance: MELOXICAM
     Indication: Inflammation
  13. VITAMIN C [Concomitant]
     Active Substance: ASCORBIC ACID
     Indication: Supplementation therapy
  14. VITAMIN E [Concomitant]
     Active Substance: .ALPHA.-TOCOPHEROL
     Indication: Supplementation therapy
  15. DOCUSATE [Concomitant]
     Active Substance: DOCUSATE
     Indication: Product used for unknown indication
  16. CALCIUM [Concomitant]
     Active Substance: CALCIUM
     Indication: Supplementation therapy
  17. GABAPENTIN [Concomitant]
     Active Substance: GABAPENTIN
     Indication: Nerve injury
  18. MELATONIN [Concomitant]
     Active Substance: MELATONIN
     Indication: Supplementation therapy
  19. HERBALS\TURMERIC [Concomitant]
     Active Substance: HERBALS\TURMERIC
     Indication: Supplementation therapy
  20. VITAMIN B12 [Concomitant]
     Active Substance: CYANOCOBALAMIN
     Indication: Supplementation therapy
  21. VITAMINS [Concomitant]
     Active Substance: VITAMINS
     Indication: Supplementation therapy
  22. LYSINE [Concomitant]
     Active Substance: LYSINE
     Indication: Supplementation therapy
  23. OMEGA 3 [Concomitant]
     Active Substance: CAPSAICIN
     Indication: Supplementation therapy

REACTIONS (10)
  - Blood cholesterol increased [Recovering/Resolving]
  - Sleep disorder [Unknown]
  - Anxiety [Not Recovered/Not Resolved]
  - Liver injury [Unknown]
  - Myalgia [Unknown]
  - Road traffic accident [Recovered/Resolved]
  - Depression [Not Recovered/Not Resolved]
  - Neck pain [Recovered/Resolved]
  - Joint contracture [Recovered/Resolved]
  - Pain [Recovering/Resolving]

NARRATIVE: CASE EVENT DATE: 20210701
